FAERS Safety Report 5917204-9 (Version None)
Quarter: 2008Q4

REPORT INFORMATION
  Report Type: 
  Country: None (occurrence: None)
  Receive Date: 20081009
  Receipt Date: 20080929
  Transmission Date: 20090506
  Serious: Yes (Other)
  Sender: FDA-Public Use
  Company Number: FEI2008-1764

PATIENT
  Age: 34 Year
  Sex: Female
  Weight: 107.5025 kg

DRUGS (3)
  1. PARAGARD T 380A [Suspect]
     Indication: CONTRACEPTION
     Dosage: INTRA-UTERINE
     Route: 015
     Dates: start: 20060524, end: 20080414
  2. SYNTHROID [Concomitant]
  3. LEXAPRO [Concomitant]

REACTIONS (2)
  - PREGNANCY WITH CONTRACEPTIVE DEVICE [None]
  - WEIGHT INCREASED [None]
